FAERS Safety Report 17268634 (Version 1)
Quarter: 2020Q1

REPORT INFORMATION
  Report Type: Report from Study
  Country: CA (occurrence: CA)
  Receive Date: 20200114
  Receipt Date: 20200114
  Transmission Date: 20200409
  Serious: Yes (Other)
  Sender: FDA-Public Use
  Company Number: CA-JNJFOC-20191241504

PATIENT
  Age: 52 Year
  Sex: Female
  Weight: 95.4 kg

DRUGS (1)
  1. REMICADE [Suspect]
     Active Substance: INFLIXIMAB
     Indication: PSORIATIC ARTHROPATHY
     Route: 042
     Dates: start: 20120605

REACTIONS (7)
  - Psoriatic arthropathy [Unknown]
  - Lymphadenopathy [Unknown]
  - Sinus disorder [Unknown]
  - Migraine [Unknown]
  - Oral herpes [Unknown]
  - Cough [Unknown]
  - Fatigue [Unknown]

NARRATIVE: CASE EVENT DATE: 20191216
